FAERS Safety Report 4494202-6 (Version None)
Quarter: 2004Q4

REPORT INFORMATION
  Report Type: 
  Country: None (occurrence: None)
  Receive Date: 20041105
  Receipt Date: 20041027
  Transmission Date: 20050328
  Serious: Yes (Hospitalization)
  Sender: FDA-Public Use
  Company Number: US-ROCHE-384852

PATIENT
  Age: 38 Year
  Sex: Female

DRUGS (2)
  1. PEGASYS [Suspect]
     Indication: DRUG USE FOR UNKNOWN INDICATION
     Route: 058
     Dates: start: 20040308, end: 20040903
  2. COPEGUS [Suspect]
     Indication: DRUG USE FOR UNKNOWN INDICATION
     Route: 048
     Dates: start: 20040308, end: 20040903

REACTIONS (7)
  - CHILLS [None]
  - DEHYDRATION [None]
  - DIARRHOEA [None]
  - RENAL IMPAIRMENT [None]
  - TREMOR [None]
  - VOMITING [None]
  - WEIGHT DECREASED [None]
